FAERS Safety Report 4719755-1 (Version None)
Quarter: 2005Q3

REPORT INFORMATION
  Report Type: 
  Country: None (occurrence: None)
  Receive Date: 20050721
  Receipt Date: 20040708
  Transmission Date: 20060218
  Serious: Yes (Hospitalization)
  Sender: FDA-Public Use
  Company Number: US-GLAXOSMITHKLINE-A0518709A

PATIENT
  Sex: Female
  Weight: 120 kg

DRUGS (20)
  1. AVANDIA [Suspect]
     Indication: DRUG USE FOR UNKNOWN INDICATION
     Route: 048
     Dates: start: 19990101, end: 20040405
  2. POTASSIUM CHLORIDE [Concomitant]
  3. VERAPAMIL [Concomitant]
  4. LASIX [Concomitant]
  5. PREMARIN [Concomitant]
  6. LOTENSIN [Concomitant]
  7. GLUCOPHAGE [Concomitant]
  8. NEURONTIN [Concomitant]
  9. INSULIN [Concomitant]
  10. VICODIN [Concomitant]
  11. NORVASC [Concomitant]
  12. NITROGLYCERIN [Concomitant]
     Dosage: .4MG AS REQUIRED
     Route: 060
  13. PLAVIX [Concomitant]
     Dosage: 75MG PER DAY
     Route: 048
  14. ZOLOFT [Concomitant]
     Dosage: 100MG PER DAY
     Route: 048
  15. ISOSORBIDE MONONITRATE [Concomitant]
     Dosage: 60MG PER DAY
  16. ALBUTEROL [Concomitant]
     Route: 055
  17. XANAX [Concomitant]
  18. ELAVIL [Concomitant]
  19. MAXZIDE [Concomitant]
  20. PROTONIX [Concomitant]

REACTIONS (1)
  - CARDIAC FAILURE CONGESTIVE [None]
